FAERS Safety Report 18370641 (Version 2)
Quarter: 2020Q4

REPORT INFORMATION
  Report Type: Spontaneous
  Country: PT (occurrence: PT)
  Receive Date: 20201012
  Receipt Date: 20201019
  Transmission Date: 20210114
  Serious: Yes (Other)
  Sender: FDA-Public Use
  Company Number: PT-ABBVIE-20K-130-3601466-00

PATIENT
  Age: 29 Year
  Sex: Female

DRUGS (1)
  1. HUMIRA [Suspect]
     Active Substance: ADALIMUMAB
     Indication: PSORIASIS
     Route: 058
     Dates: start: 202001

REACTIONS (2)
  - Maternal exposure during pregnancy [Unknown]
  - Gestational diabetes [Not Recovered/Not Resolved]

NARRATIVE: CASE EVENT DATE: 2020
